FAERS Safety Report 4436574-4 (Version None)
Quarter: 2004Q3

REPORT INFORMATION
  Report Type: 
  Country: None (occurrence: None)
  Receive Date: 20040830
  Receipt Date: 20040630
  Transmission Date: 20050211
  Serious: No
  Sender: FDA-Public Use
  Company Number: US-BRISTOL-MYERS SQUIBB COMPANY-12629275

PATIENT
  Sex: Female
  Weight: 48 kg

DRUGS (1)
  1. ABILIFY [Suspect]
     Indication: OBSESSIVE-COMPULSIVE DISORDER
     Route: 048
     Dates: start: 20040626

REACTIONS (4)
  - FATIGUE [None]
  - HUNGER [None]
  - MOVEMENT DISORDER [None]
  - NAUSEA [None]
